FAERS Safety Report 25029571 (Version 1)
Quarter: 2025Q1

REPORT INFORMATION
  Report Type: Spontaneous
  Country: BR (occurrence: BR)
  Receive Date: 20250303
  Receipt Date: 20250303
  Transmission Date: 20250408
  Serious: Yes (Other)
  Sender: CIPLA
  Company Number: BR-MLMSERVICE-20250213-PI408774-00184-1

PATIENT

DRUGS (5)
  1. CARBOPLATIN [Suspect]
     Active Substance: CARBOPLATIN
     Indication: Medulloblastoma
     Route: 065
  2. ISOTRETINOIN [Suspect]
     Active Substance: ISOTRETINOIN
     Indication: Medulloblastoma
     Dosage: 100 MILLIGRAM/SQ. METER, QD (MAINTENANCE CYCLES OF 21 DAYS)
     Route: 048
  3. ETOPOSIDE [Concomitant]
     Active Substance: ETOPOSIDE
     Indication: Medulloblastoma
     Route: 065
  4. VINCRISTINE [Concomitant]
     Active Substance: VINCRISTINE
     Indication: Medulloblastoma
     Route: 065
  5. IFOSFAMIDE [Concomitant]
     Active Substance: IFOSFAMIDE
     Indication: Medulloblastoma
     Route: 065

REACTIONS (2)
  - Bone development abnormal [Recovered/Resolved]
  - Epiphyses premature fusion [Recovered/Resolved]
